FAERS Safety Report 24304770 (Version 1)
Quarter: 2024Q3

REPORT INFORMATION
  Report Type: Spontaneous
  Country: RU (occurrence: RU)
  Receive Date: 20240910
  Receipt Date: 20240910
  Transmission Date: 20241017
  Serious: Yes (Hospitalization)
  Sender: TAKEDA
  Company Number: RU-TAKEDA-2024TUS089110

PATIENT
  Age: 9 Year
  Sex: Female
  Weight: 50 kg

DRUGS (1)
  1. ENTYVIO [Suspect]
     Active Substance: VEDOLIZUMAB
     Dosage: 300 MILLIGRAM
     Route: 042
     Dates: start: 20240805, end: 20240805

REACTIONS (6)
  - Facial paralysis [Recovering/Resolving]
  - Eyelid ptosis [Recovering/Resolving]
  - Piloerection [Recovering/Resolving]
  - Hypoaesthesia [Recovering/Resolving]
  - Blood pressure increased [Recovering/Resolving]
  - Muscular weakness [Recovering/Resolving]

NARRATIVE: CASE EVENT DATE: 20240805
